FAERS Safety Report 6257639-0 (Version None)
Quarter: 2009Q3

REPORT INFORMATION
  Report Type: 
  Country: None (occurrence: None)
  Receive Date: 20090702
  Receipt Date: 20090618
  Transmission Date: 20100115
  Serious: Yes (Hospitalization)
  Sender: FDA-Public Use
  Company Number: THYR-1000163

PATIENT
  Age: 81 Year
  Sex: Female

DRUGS (2)
  1. THYROGEN [Suspect]
     Indication: HYPERTHYROIDISM
     Dosage: 0.1 MG, TWO CONSECUTIVE DAYS, INTRAMUSCULAR
     Route: 030
     Dates: start: 20040101, end: 20040101
  2. RADIOACTIVE IODINE SOLUTION (SODIUM IODIDE (131 I) MCI [Suspect]
     Indication: HYPERTHYROIDISM
     Dosage: 18 MCI, ONCE
     Dates: start: 20040101, end: 20040101

REACTIONS (2)
  - ATRIAL FIBRILLATION [None]
  - THYROID FUNCTION TEST ABNORMAL [None]
